FAERS Safety Report 6139860-5 (Version None)
Quarter: 2009Q2

REPORT INFORMATION
  Report Type: 
  Country: None (occurrence: None)
  Receive Date: 20090401
  Receipt Date: 20090324
  Transmission Date: 20091009
  Serious: Yes (Other)
  Sender: FDA-Public Use
  Company Number: DE-ASTRAZENECA-2009AC00944

PATIENT

DRUGS (2)
  1. QUETIAPINE [Suspect]
     Indication: MAJOR DEPRESSION
  2. CARBAMAZEPINE [Interacting]
     Indication: EPILEPSY

REACTIONS (2)
  - ANTIPSYCHOTIC DRUG LEVEL BELOW THERAPEUTIC [None]
  - DRUG INTERACTION [None]
